FAERS Safety Report 10870403 (Version 1)
Quarter: 2015Q1

REPORT INFORMATION
  Report Type: Report from Study
  Country: FR (occurrence: FR)
  Receive Date: 20150226
  Receipt Date: 20150226
  Transmission Date: 20150721
  Serious: Yes (Hospitalization)
  Sender: FDA-Public Use
  Company Number: FR-SA-2014SA170692

PATIENT
  Age: 58 Year

DRUGS (2)
  1. MORPHINE [Concomitant]
     Active Substance: MORPHINE
  2. CABAZITAXEL [Suspect]
     Active Substance: CABAZITAXEL
     Route: 065

REACTIONS (15)
  - Oedema peripheral [Recovering/Resolving]
  - Dyspnoea [Not Recovered/Not Resolved]
  - Fatigue [Not Recovered/Not Resolved]
  - Constipation [Recovering/Resolving]
  - Decreased appetite [Recovering/Resolving]
  - Vomiting [Not Recovered/Not Resolved]
  - Lacrimation increased [Unknown]
  - Diarrhoea [Unknown]
  - Insomnia [Unknown]
  - Weight decreased [Unknown]
  - Prostatic specific antigen increased [Unknown]
  - Nausea [Recovering/Resolving]
  - Pulmonary embolism [Unknown]
  - Peripheral sensory neuropathy [Unknown]
  - Pain in extremity [Recovering/Resolving]

NARRATIVE: CASE EVENT DATE: 20141009
